FAERS Safety Report 23833262 (Version 1)
Quarter: 2024Q2

REPORT INFORMATION
  Report Type: Spontaneous
  Country: US (occurrence: US)
  Receive Date: 20240508
  Receipt Date: 20240508
  Transmission Date: 20240716
  Serious: No
  Sender: FDA-Public Use
  Company Number: US-002147023-NVSC2024US095302

PATIENT

DRUGS (1)
  1. COSENTYX [Suspect]
     Active Substance: SECUKINUMAB
     Indication: Psoriasis
     Dosage: 350 MG, (EVERY FOUR WEEKS)
     Route: 065

REACTIONS (8)
  - Abdominal discomfort [Unknown]
  - Pain [Unknown]
  - Fatigue [Unknown]
  - Nausea [Unknown]
  - COVID-19 [Unknown]
  - Influenza [Unknown]
  - Illness [Unknown]
  - Respiratory tract infection [Unknown]
